FAERS Safety Report 8009545-9 (Version None)
Quarter: 2011Q4

REPORT INFORMATION
  Report Type: 
  Country: None (occurrence: None)
  Receive Date: 20111227
  Receipt Date: 20111215
  Transmission Date: 20120403
  Serious: Yes (Other)
  Sender: FDA-Public Use
  Company Number: US-ASTRAZENECA-2010SE51620

PATIENT
  Age: 86 Year
  Sex: Female

DRUGS (3)
  1. TOPROL-XL [Suspect]
     Route: 048
  2. CRESTOR [Suspect]
     Route: 048
  3. NEXIUM [Suspect]
     Route: 048

REACTIONS (6)
  - DISABILITY [None]
  - MALAISE [None]
  - MYOCARDIAL INFARCTION [None]
  - DIABETES MELLITUS [None]
  - FATIGUE [None]
  - CARDIAC DISORDER [None]
